FAERS Safety Report 7438740-2 (Version None)
Quarter: 2011Q2

REPORT INFORMATION
  Report Type: 
  Country: None (occurrence: None)
  Receive Date: 20110426
  Receipt Date: 20110415
  Transmission Date: 20111010
  Serious: Yes (Death, Life-Threatening, Hospitalization)
  Sender: FDA-Public Use
  Company Number: JP-ACTELION-A-CH2010-35035

PATIENT
  Sex: Male
  Weight: 62 kg

DRUGS (10)
  1. TRACLEER [Suspect]
     Indication: PULMONARY ARTERIAL HYPERTENSION
     Dosage: 125 MG, BID
     Route: 048
     Dates: start: 20071114, end: 20080610
  2. TRACLEER [Suspect]
     Dosage: 62.5 MG, BID
     Route: 048
     Dates: start: 20070918, end: 20071113
  3. FUROSEMIDE [Concomitant]
  4. PIMOBENDAN [Concomitant]
  5. OXYGEN [Concomitant]
  6. PROPRANOLOL HYDROCHLORIDE [Concomitant]
  7. DIGOXIN [Concomitant]
  8. SPIRONOLACTONE [Concomitant]
  9. BERAPROST SODIUM [Concomitant]
  10. ENALAPRIL [Concomitant]

REACTIONS (12)
  - MULTI-ORGAN FAILURE [None]
  - DECREASED APPETITE [None]
  - CARDIOMEGALY [None]
  - PERICARDIAL DRAINAGE [None]
  - PERICARDITIS [None]
  - ABDOMINAL PAIN [None]
  - CONSTIPATION [None]
  - SEPSIS [None]
  - VOMITING [None]
  - PERICARDIAL EFFUSION [None]
  - DIARRHOEA [None]
  - MELAENA [None]
